FAERS Safety Report 14860397 (Version 1)
Quarter: 2018Q2

REPORT INFORMATION
  Report Type: Spontaneous
  Country: FR (occurrence: FR)
  Receive Date: 20180508
  Receipt Date: 20180508
  Transmission Date: 20180711
  Serious: Yes (Life-Threatening, Hospitalization)
  Sender: FDA-Public Use
  Company Number: FR-SA-2018SA125752

PATIENT
  Age: 78 Year
  Sex: Female
  Weight: 67 kg

DRUGS (15)
  1. FUMAFER [Concomitant]
     Active Substance: FERROUS FUMARATE
     Route: 065
  2. LOVENOX [Suspect]
     Active Substance: ENOXAPARIN SODIUM
     Indication: PROPHYLAXIS
     Route: 058
     Dates: start: 20180308, end: 20180310
  3. CORTANCYL [Suspect]
     Active Substance: PREDNISONE
     Indication: TEMPORAL ARTERITIS
     Route: 048
     Dates: start: 20180308
  4. FOSAVANCE [Concomitant]
     Active Substance: ALENDRONATE SODIUM\CHOLECALCIFEROL
  5. KARDEGIC [Suspect]
     Active Substance: ASPIRIN DL-LYSINE
     Route: 048
     Dates: end: 20180404
  6. IXPRIM [Concomitant]
     Active Substance: ACETAMINOPHEN\TRAMADOL HYDROCHLORIDE
  7. ROSUVASTATIN. [Concomitant]
     Active Substance: ROSUVASTATIN
  8. BROMAZEPAM [Concomitant]
     Active Substance: BROMAZEPAM
  9. IRBESARTAN. [Concomitant]
     Active Substance: IRBESARTAN
  10. DIFFU K [Concomitant]
     Active Substance: POTASSIUM CHLORIDE
  11. FOLIC ACID. [Concomitant]
     Active Substance: FOLIC ACID
  12. ESOMEPRAZOLE [Concomitant]
     Active Substance: ESOMEPRAZOLE
  13. DEROXAT [Suspect]
     Active Substance: PAROXETINE HYDROCHLORIDE
     Indication: DEPRESSION
     Route: 048
     Dates: end: 20180412
  14. AMLOR [Concomitant]
     Active Substance: AMLODIPINE BESYLATE
  15. LEVOTHYROX [Concomitant]
     Active Substance: LEVOTHYROXINE

REACTIONS (6)
  - Gastrointestinal ulcer [Recovering/Resolving]
  - Muscle haemorrhage [Unknown]
  - Rectal haemorrhage [Recovering/Resolving]
  - Diverticulum intestinal [Recovering/Resolving]
  - Abdominal pain [Recovering/Resolving]
  - Melaena [Recovering/Resolving]

NARRATIVE: CASE EVENT DATE: 20180315
